FAERS Safety Report 17931698 (Version 1)
Quarter: 2020Q2

REPORT INFORMATION
  Report Type: Spontaneous
  Country: IL (occurrence: IL)
  Receive Date: 20200624
  Receipt Date: 20200624
  Transmission Date: 20200714
  Serious: Yes (Hospitalization, Other)
  Sender: FDA-Public Use
  Company Number: IL-009507513-2006ISR007938

PATIENT
  Age: 80 Year
  Sex: Male

DRUGS (2)
  1. CARBOPLATIN (+) PACLITAXEL [Suspect]
     Active Substance: CARBOPLATIN\PACLITAXEL
  2. KEYTRUDA [Suspect]
     Active Substance: PEMBROLIZUMAB
     Indication: SQUAMOUS CELL CARCINOMA OF HEAD AND NECK

REACTIONS (2)
  - Malignant neoplasm progression [Unknown]
  - Sepsis [Not Recovered/Not Resolved]

NARRATIVE: CASE EVENT DATE: 202006
